FAERS Safety Report 7933421-0 (Version None)
Quarter: 2011Q4

REPORT INFORMATION
  Report Type: 
  Country: None (occurrence: None)
  Receive Date: 20111118
  Receipt Date: 20111111
  Transmission Date: 20120403
  Serious: Yes (Hospitalization, Other)
  Sender: FDA-Public Use
  Company Number: 2010SP063657

PATIENT
  Age: 32 Year
  Sex: Female
  Weight: 61.2356 kg

DRUGS (2)
  1. NUVARING [Suspect]
     Indication: HORMONE REPLACEMENT THERAPY
     Dates: start: 20080909, end: 20081115
  2. PHENTERMINE [Concomitant]

REACTIONS (28)
  - DERMATOMYOSITIS [None]
  - VAGINITIS BACTERIAL [None]
  - TACHYPHRENIA [None]
  - PRODUCT QUALITY ISSUE [None]
  - CHALAZION [None]
  - PALPITATIONS [None]
  - CYSTITIS INTERSTITIAL [None]
  - INFECTION [None]
  - ASTHMA [None]
  - INSOMNIA [None]
  - VAGINAL INFECTION [None]
  - PAIN IN EXTREMITY [None]
  - URINARY TRACT INFECTION [None]
  - STRESS [None]
  - HEART RATE INCREASED [None]
  - HYPERCOAGULATION [None]
  - CHEST PAIN [None]
  - VULVOVAGINAL CANDIDIASIS [None]
  - HEPATIC STEATOSIS [None]
  - CHEST DISCOMFORT [None]
  - PULMONARY EMBOLISM [None]
  - METHYLENETETRAHYDROFOLATE REDUCTASE POLYMORPHISM [None]
  - EMOTIONAL DISORDER [None]
  - MENTAL DISORDER [None]
  - POLYMYOSITIS [None]
  - TROPONIN INCREASED [None]
  - ANXIETY [None]
  - DYSURIA [None]
